FAERS Safety Report 19087932 (Version 1)
Quarter: 2021Q2

REPORT INFORMATION
  Report Type: Spontaneous
  Country: DE (occurrence: DE)
  Receive Date: 20210402
  Receipt Date: 20210402
  Transmission Date: 20210717
  Serious: Yes (Other)
  Sender: FDA-Public Use
  Company Number: DE-PURDUE-USA-2021-0239419

PATIENT
  Sex: Male

DRUGS (1)
  1. PALLADON INJEKT [Suspect]
     Active Substance: HYDROMORPHONE
     Indication: PAIN
     Dosage: UNK, PRN [STRENGTH 1 MG/ML]
     Route: 065

REACTIONS (3)
  - Coagulopathy [Unknown]
  - Pain [Unknown]
  - Hepatic failure [Unknown]
